FAERS Safety Report 5679919-X (Version None)
Quarter: 2008Q1

REPORT INFORMATION
  Report Type: 
  Country: None (occurrence: None)
  Receive Date: 20080324
  Receipt Date: 20061127
  Transmission Date: 20080703
  Serious: Yes (Life-Threatening, Hospitalization)
  Sender: FDA-Public Use
  Company Number: 2006SP007462

PATIENT
  Age: 10 Year
  Sex: Male

DRUGS (3)
  1. SALBULIN HFA (SALBUTAMOL) (ALBUTEROL SULFATE) [Suspect]
     Indication: STATUS ASTHMATICUS
     Dosage: INH
     Route: 055
  2. ATROVENT [Suspect]
     Indication: STATUS ASTHMATICUS
  3. CORTICOSTEROIDS [Concomitant]

REACTIONS (11)
  - BRADYCARDIA [None]
  - COUGH [None]
  - MYDRIASIS [None]
  - NO THERAPEUTIC RESPONSE [None]
  - PUPILLARY REFLEX IMPAIRED [None]
  - PUPILS UNEQUAL [None]
  - RESPIRATORY DISTRESS [None]
  - RHINORRHOEA [None]
  - TACHYCARDIA [None]
  - TACHYPNOEA [None]
  - WHEEZING [None]
